FAERS Safety Report 25996551 (Version 1)
Quarter: 2025Q4

REPORT INFORMATION
  Report Type: Spontaneous
  Country: EU (occurrence: EU)
  Receive Date: 20251104
  Receipt Date: 20251104
  Transmission Date: 20260118
  Serious: Yes (Other)
  Sender: ABBVIE
  Company Number: EU-ABBVIE-6527185

PATIENT
  Age: 64 Year
  Sex: Male
  Weight: 83 kg

DRUGS (1)
  1. RINVOQ [Suspect]
     Active Substance: UPADACITINIB
     Indication: Dermatitis atopic
     Dosage: 15 MILLIGRAM
     Route: 048
     Dates: start: 20250226, end: 20251028

REACTIONS (2)
  - Tongue neoplasm [Not Recovered/Not Resolved]
  - Tongue ulceration [Unknown]

NARRATIVE: CASE EVENT DATE: 20251009
